FAERS Safety Report 18459086 (Version 2)
Quarter: 2022Q2

REPORT INFORMATION
  Report Type: Spontaneous
  Country: CH (occurrence: CH)
  Receive Date: 20201103
  Receipt Date: 20220506
  Transmission Date: 20220720
  Serious: Yes (Death, Other)
  Sender: FDA-Public Use
  Company Number: None

PATIENT
  Age: 85 Year
  Sex: Male

DRUGS (36)
  1. VIMPAT [Suspect]
     Active Substance: LACOSAMIDE
     Indication: Epilepsy
     Dosage: 150 MILLIGRAM, 2X/DAY (BID)
     Route: 048
     Dates: start: 20200630, end: 20200707
  2. VIMPAT [Suspect]
     Active Substance: LACOSAMIDE
     Dosage: 100 MILLIGRAM, ONCE DAILY (QD)
     Route: 048
     Dates: start: 20200707, end: 20200710
  3. VIMPAT [Suspect]
     Active Substance: LACOSAMIDE
     Dosage: 100 MILLIGRAM, 2X/DAY (BID)
     Route: 048
     Dates: start: 20200710, end: 20200716
  4. VIMPAT [Suspect]
     Active Substance: LACOSAMIDE
     Dosage: 150 MILLIGRAM, ONCE DAILY (QD)
     Route: 048
     Dates: start: 20200716, end: 20200804
  5. VIMPAT [Suspect]
     Active Substance: LACOSAMIDE
     Dosage: 150 MILLIGRAM, 2X/DAY (BID)
     Route: 048
     Dates: start: 20200804
  6. REMERON [Interacting]
     Active Substance: MIRTAZAPINE
     Indication: Mixed anxiety and depressive disorder
     Dosage: 7.5 MILLIGRAM, ONCE DAILY (QD)
     Route: 048
     Dates: start: 20200803, end: 20200812
  7. REMERON [Interacting]
     Active Substance: MIRTAZAPINE
     Indication: Sleep disorder
     Dosage: 15 MILLIGRAM, ONCE DAILY (QD)
     Route: 048
     Dates: start: 20200812, end: 20200827
  8. REMERON [Interacting]
     Active Substance: MIRTAZAPINE
     Dosage: 30 MILLIGRAM, ONCE DAILY (QD)
     Route: 048
     Dates: start: 20200827
  9. PREGABALIN [Suspect]
     Active Substance: PREGABALIN
     Indication: Epilepsy
     Dosage: 25 MILLIGRAM, 2X/DAY (BID)
     Route: 048
     Dates: start: 20200710, end: 20200717
  10. PREGABALIN [Suspect]
     Active Substance: PREGABALIN
     Indication: Anxiety
     Dosage: 25 MILLIGRAM, ONCE DAILY (QD)
     Route: 048
     Dates: start: 20200717, end: 20200720
  11. PREGABALIN [Suspect]
     Active Substance: PREGABALIN
     Dosage: 50 MILLIGRAM, ONCE DAILY (QD)
     Route: 048
     Dates: start: 20200720, end: 20200723
  12. PREGABALIN [Suspect]
     Active Substance: PREGABALIN
     Dosage: 25 MILLIGRAM, ONCE DAILY (QD)
     Route: 048
     Dates: start: 20200723, end: 20200727
  13. PREGABALIN [Suspect]
     Active Substance: PREGABALIN
     Dosage: 50 MILLIGRAM, ONCE DAILY (QD)
     Route: 048
     Dates: start: 20200727, end: 20200914
  14. PREGABALIN [Suspect]
     Active Substance: PREGABALIN
     Dosage: 50 MILLIGRAM, 2X/DAY (BID)
     Route: 048
     Dates: start: 20200914
  15. QUETIAPINE [Suspect]
     Active Substance: QUETIAPINE
     Indication: Anxiety
     Dosage: 12.5 MILLIGRAM, 3X/DAY (TID)
     Route: 048
     Dates: start: 20200710, end: 20200713
  16. QUETIAPINE [Suspect]
     Active Substance: QUETIAPINE
     Dosage: 12.5 MILLIGRAM, ONCE DAILY (QD)
     Route: 048
     Dates: start: 20200713, end: 20200723
  17. QUETIAPINE [Suspect]
     Active Substance: QUETIAPINE
     Dosage: 5 MILLIGRAM, 2X/DAY (BID)
     Route: 048
     Dates: start: 20200713, end: 20200718
  18. QUETIAPINE [Suspect]
     Active Substance: QUETIAPINE
     Dosage: 5 MILLIGRAM, ONCE DAILY (QD)
     Route: 048
     Dates: start: 20200723, end: 20200727
  19. QUETIAPINE [Suspect]
     Active Substance: QUETIAPINE
     Dosage: 6.25 MILLIGRAM, 2X/DAY (BID)
     Route: 048
     Dates: start: 20200718, end: 20200720
  20. QUETIAPINE [Suspect]
     Active Substance: QUETIAPINE
     Dosage: 25 MILLIGRAM, ONCE DAILY (QD)
     Route: 048
     Dates: start: 20200730, end: 20200826
  21. QUETIAPINE [Suspect]
     Active Substance: QUETIAPINE
     Dosage: 12.5 MILLIGRAM, ONCE DAILY (QD)
     Route: 048
     Dates: start: 20200727, end: 20200730
  22. QUETIAPINE [Suspect]
     Active Substance: QUETIAPINE
     Dosage: 12.5 MILLIGRAM, ONCE DAILY (QD)
     Route: 048
     Dates: start: 20200826, end: 20200828
  23. QUETIAPINE [Suspect]
     Active Substance: QUETIAPINE
     Dosage: 25 MILLIGRAM, ONCE DAILY (QD)
     Route: 048
     Dates: start: 20200828, end: 20200919
  24. QUETIAPINE [Suspect]
     Active Substance: QUETIAPINE
     Dosage: 25 MILLIGRAM, 2X/DAY (BID)
     Route: 048
     Dates: start: 20200921, end: 20201012
  25. QUETIAPINE [Suspect]
     Active Substance: QUETIAPINE
     Dosage: 37.5 MILLIGRAM, ONCE DAILY (QD)
     Route: 048
     Dates: start: 20201013
  26. HALDOL [Interacting]
     Active Substance: HALOPERIDOL
     Indication: Product used for unknown indication
     Dosage: UNK
     Dates: start: 20200911, end: 20200915
  27. HALDOL [Interacting]
     Active Substance: HALOPERIDOL
     Dosage: 0.5 MILLIGRAM, 2X/DAY (IF NECESSARY)
     Dates: start: 20200915, end: 20200918
  28. BUPRENORPHINE [Concomitant]
     Active Substance: BUPRENORPHINE
     Indication: Product used for unknown indication
     Dates: start: 20200828
  29. CEFTRIAXONE [Concomitant]
     Active Substance: CEFTRIAXONE
     Indication: Product used for unknown indication
     Dates: start: 20200911, end: 20200911
  30. CEFUROXIME [Concomitant]
     Active Substance: CEFUROXIME
     Indication: Product used for unknown indication
     Dates: start: 20200911, end: 20200917
  31. ENOXAPARIN SODIUM [Concomitant]
     Active Substance: ENOXAPARIN SODIUM
     Indication: Product used for unknown indication
     Dates: start: 20200625
  32. MELATONIN [Concomitant]
     Active Substance: MELATONIN
     Indication: Product used for unknown indication
     Dates: start: 20200719
  33. DAFALGAN [Concomitant]
     Active Substance: ACETAMINOPHEN
     Indication: Product used for unknown indication
     Dates: start: 20200710
  34. SILODOSIN [Concomitant]
     Active Substance: SILODOSIN
     Indication: Product used for unknown indication
     Dates: start: 20200814
  35. PROLIA [Concomitant]
     Active Substance: DENOSUMAB
     Indication: Product used for unknown indication
     Dosage: UNK
     Dates: start: 20200921, end: 20200921
  36. LORAZEPAM [Concomitant]
     Active Substance: LORAZEPAM
     Indication: Product used for unknown indication
     Dosage: UNK
     Dates: start: 20200922, end: 20200923

REACTIONS (5)
  - Death [Fatal]
  - Myoclonus [Recovered/Resolved]
  - Toxic encephalopathy [Recovered/Resolved]
  - Drug interaction [Unknown]
  - Inappropriate schedule of product administration [Unknown]

NARRATIVE: CASE EVENT DATE: 20200707
